FAERS Safety Report 20196060 (Version 2)
Quarter: 2022Q1

REPORT INFORMATION
  Report Type: Report from Study
  Country: US (occurrence: US)
  Receive Date: 20211216
  Receipt Date: 20220215
  Transmission Date: 20220424
  Serious: Yes (Hospitalization)
  Sender: FDA-Public Use
  Company Number: US-BIOGEN-2021BI01076981

PATIENT
  Age: 60 Year
  Sex: Female

DRUGS (1)
  1. TYSABRI [Suspect]
     Active Substance: NATALIZUMAB
     Indication: Multiple sclerosis
     Dosage: INFUSED OVER 1 HOUR
     Route: 042

REACTIONS (3)
  - Back pain [Not Recovered/Not Resolved]
  - Sciatica [Unknown]
  - Gait disturbance [Unknown]
